FAERS Safety Report 5285431-2 (Version None)
Quarter: 2007Q1

REPORT INFORMATION
  Report Type: 
  Country: None (occurrence: None)
  Receive Date: 20070328
  Receipt Date: 20070320
  Transmission Date: 20070707
  Serious: Yes (Death, Hospitalization)
  Sender: FDA-Public Use
  Company Number: 163-20785-07030253

PATIENT
  Age: 80 Year
  Sex: Male

DRUGS (1)
  1. THALOMID [Suspect]
     Indication: MYELODYSPLASTIC SYNDROME
     Dosage: 100 MG DAILY ORAL
     Route: 048
     Dates: start: 20050401, end: 20070101

REACTIONS (3)
  - BONE MARROW FAILURE [None]
  - MYELOFIBROSIS [None]
  - PNEUMONITIS [None]
